FAERS Safety Report 4919969-1 (Version None)
Quarter: 2006Q1

REPORT INFORMATION
  Report Type: 
  Country: None (occurrence: None)
  Receive Date: 20060223
  Receipt Date: 20060213
  Transmission Date: 20060701
  Serious: Yes (Hospitalization)
  Sender: FDA-Public Use
  Company Number: US-AVENTIS-200611522US

PATIENT
  Sex: Female

DRUGS (7)
  1. KETEK [Suspect]
     Indication: CHRONIC SINUSITIS
     Route: 048
     Dates: start: 20050603, end: 20050608
  2. UNITHROID [Concomitant]
     Dosage: DOSE: UNK
  3. ATENOLOL W/CHLORTALIDONE [Concomitant]
     Dosage: DOSE: UNK
  4. SPIRONOLACTONE [Concomitant]
     Dosage: DOSE: UNK
  5. PRILOSEC [Concomitant]
     Dosage: DOSE: UNK
  6. FOLATE [Concomitant]
     Dosage: DOSE: UNK
  7. ASPIRIN [Concomitant]

REACTIONS (4)
  - ALANINE AMINOTRANSFERASE INCREASED [None]
  - ASPARTATE AMINOTRANSFERASE INCREASED [None]
  - CHOLELITHIASIS [None]
  - YELLOW SKIN [None]
